FAERS Safety Report 9848106 (Version 1)
Quarter: 2013Q4

REPORT INFORMATION
  Report Type: Spontaneous
  Country: US (occurrence: None)
  Receive Date: 20131226
  Receipt Date: 20131226
  Transmission Date: 20140711
  Serious: No
  Sender: FDA-Public Use
  Company Number: PHEH2013US005946

PATIENT
  Sex: Male
  Weight: 70 kg

DRUGS (1)
  1. ARCAPTA (INDACATEROL) DRY POWDER INHALER [Suspect]
     Indication: CHRONIC OBSTRUCTIVE PULMONARY DISEASE

REACTIONS (1)
  - No adverse event [None]
